FAERS Safety Report 13435477 (Version 1)
Quarter: 2017Q2

REPORT INFORMATION
  Report Type: Spontaneous
  Country: US (occurrence: US)
  Receive Date: 20170412
  Receipt Date: 20170412
  Transmission Date: 20170830
  Serious: No
  Sender: FDA-Public Use
  Company Number: US-SA-2016SA112410

PATIENT
  Age: 56 Year
  Sex: Female

DRUGS (1)
  1. ALLEGRA [Suspect]
     Active Substance: FEXOFENADINE HYDROCHLORIDE
     Indication: MULTIPLE ALLERGIES
     Route: 048
     Dates: start: 20160607, end: 20160609

REACTIONS (6)
  - Somnolence [Unknown]
  - Dysarthria [Unknown]
  - Nervousness [Unknown]
  - Feeling jittery [Unknown]
  - Feeling abnormal [Unknown]
  - Dizziness [Unknown]
